FAERS Safety Report 16931202 (Version 2)
Quarter: 2019Q4

REPORT INFORMATION
  Report Type: Spontaneous
  Country: NL (occurrence: FR)
  Receive Date: 20191017
  Receipt Date: 20191107
  Transmission Date: 20200122
  Serious: Yes (Hospitalization)
  Sender: FDA-Public Use
  Company Number: FR-FRESENIUS KABI-FK201910965

PATIENT
  Age: 25 Year
  Sex: Male
  Weight: 65 kg

DRUGS (26)
  1. GLUCOSE (MANUFACTURER UNKNOWN) [Suspect]
     Active Substance: DEXTROSE
     Dosage: 4420ML
     Route: 042
     Dates: start: 20190820, end: 20190822
  2. SODIUM BICARBONATE (MANUFACTURER UNKNOWN) [Suspect]
     Active Substance: SODIUM BICARBONATE
     Indication: SUICIDE ATTEMPT
     Dosage: INCONNUE
     Route: 042
     Dates: start: 20190820
  3. SODIUM [Suspect]
     Active Substance: SODIUM
     Indication: SUICIDE ATTEMPT
     Dosage: 1519ML
     Route: 042
     Dates: start: 20190820, end: 20190823
  4. NOREPINEPHRINE BITARTRATE MONOHYDRATE [Suspect]
     Active Substance: NOREPINEPHRINE BITARTRATE
     Indication: SUICIDE ATTEMPT
     Dosage: INCONNUE
     Route: 042
     Dates: start: 20190820, end: 20190822
  5. QUETIAPINE. [Concomitant]
     Active Substance: QUETIAPINE
     Indication: DEPRESSION
     Dosage: 800MG, QD
     Route: 048
     Dates: start: 20190718
  6. GLYCINE/ALANINE/SERINE/ASPARTIC ACID/LYSINE/TYROSINE/LEUCINE/METHIONINE/PHENYLALANINE/HISTIDINE/VALI [Concomitant]
     Indication: SUICIDE ATTEMPT
     Dosage: 431ML
     Route: 042
     Dates: start: 20190821, end: 20190822
  7. ROCURONIUM BROMIDE. [Suspect]
     Active Substance: ROCURONIUM BROMIDE
     Indication: SUICIDE ATTEMPT
     Dosage: 70MG
     Route: 042
     Dates: start: 20190820, end: 20190820
  8. LORMETAZEPAM [Concomitant]
     Active Substance: LORMETAZEPAM
     Indication: DEPRESSION
     Dosage: 2MG, QD
     Route: 048
     Dates: start: 20190714
  9. CYAMEMAZINE [Concomitant]
     Active Substance: CYAMEMAZINE
     Indication: DEPRESSION
     Dosage: 1 DF
     Route: 048
     Dates: start: 20190830
  10. PAROXETINE. [Concomitant]
     Active Substance: PAROXETINE
     Indication: DEPRESSION
     Dosage: 20MG, QD
     Route: 048
     Dates: start: 20190715
  11. ALIMEMAZINE TARTRATE [Concomitant]
     Active Substance: TRIMEPRAZINE
     Indication: DEPRESSION
     Dosage: 25 DROP
     Route: 048
  12. ENOXAPARIN SODIUM. [Suspect]
     Active Substance: ENOXAPARIN SODIUM
     Indication: SUICIDE ATTEMPT
     Dosage: 1 DF
     Route: 058
     Dates: start: 20190821, end: 20190822
  13. CISATRACURIUM BESILATE [Suspect]
     Active Substance: CISATRACURIUM BESYLATE
     Indication: SUICIDE ATTEMPT
     Dosage: 125MG
     Route: 042
     Dates: start: 20190820, end: 20190821
  14. GLUCOSE (MANUFACTURER UNKNOWN) [Suspect]
     Active Substance: DEXTROSE
     Indication: SUICIDE ATTEMPT
     Dosage: 3400ML
     Route: 042
     Dates: start: 20190820, end: 20190823
  15. TERLIPRESSIN ACETATE [Suspect]
     Active Substance: TERLIPRESSIN
     Indication: SUICIDE ATTEMPT
     Dosage: 143 MG
     Route: 042
     Dates: start: 20190820, end: 20190821
  16. CALCIUM CHLORIDE. [Suspect]
     Active Substance: CALCIUM CHLORIDE
     Indication: SUICIDE ATTEMPT
     Dosage: INCONNUE
     Route: 042
     Dates: start: 20190820, end: 20190823
  17. AMLODIPINE [Concomitant]
     Active Substance: AMLODIPINE BESYLATE
     Indication: HYPERTENSION
     Dosage: 5MG, QD
     Route: 048
  18. CHARCOAL, ACTIVATED [Concomitant]
     Active Substance: ACTIVATED CHARCOAL
     Indication: SUICIDE ATTEMPT
     Dosage: 200G
     Route: 048
     Dates: start: 20190820, end: 20190821
  19. WATER FOR INJECTION [Suspect]
     Active Substance: WATER
     Indication: SUICIDE ATTEMPT
     Dosage: 1453ML
     Route: 042
     Dates: start: 20190820, end: 20190823
  20. INSULIN PORCINE [Suspect]
     Active Substance: INSULIN PORK\INSULIN PURIFIED PORK
     Indication: SUICIDE ATTEMPT
     Dosage: 2960IU
     Route: 042
     Dates: start: 20190820, end: 20190821
  21. FENTANYL. [Suspect]
     Active Substance: FENTANYL
     Indication: SUICIDE ATTEMPT
     Dosage: 2500UG
     Route: 042
     Dates: start: 20190821, end: 20190822
  22. CERNEVIT [Suspect]
     Active Substance: VITAMINS
     Indication: SUICIDE ATTEMPT
     Dosage: 1L
     Route: 042
     Dates: start: 20190821, end: 20190823
  23. GLUCOSE (MANUFACTURER UNKNOWN) [Suspect]
     Active Substance: DEXTROSE
     Dosage: 390ML
     Route: 042
     Dates: start: 20190823, end: 20190823
  24. INTRALIPID [Suspect]
     Active Substance: EGG PHOSPHOLIPIDS\GLYCERIN\SOYBEAN OIL
     Indication: TOXICITY TO VARIOUS AGENTS
     Dosage: INCONNUE
     Route: 042
     Dates: start: 20190820, end: 20190823
  25. POTASSIUM CHLORIDE (MANUFACTURER UNKNOWN) [Suspect]
     Active Substance: POTASSIUM CHLORIDE
     Indication: SUICIDE ATTEMPT
     Dosage: 31.75G
     Route: 042
     Dates: start: 20190820, end: 20190823
  26. MIDAZOLAM HYDROCHLORIDE. [Suspect]
     Active Substance: MIDAZOLAM HYDROCHLORIDE
     Indication: SUICIDE ATTEMPT
     Dosage: 137 IU
     Route: 042
     Dates: start: 20190821, end: 20190822

REACTIONS (1)
  - Thrombophlebitis superficial [Recovered/Resolved]

NARRATIVE: CASE EVENT DATE: 20190904
